FAERS Safety Report 6609769-9 (Version None)
Quarter: 2010Q1

REPORT INFORMATION
  Report Type: 
  Country: None (occurrence: None)
  Receive Date: 20100302
  Receipt Date: 20100215
  Transmission Date: 20100710
  Serious: Yes (Other)
  Sender: FDA-Public Use
  Company Number: PHHY2010IN10376

PATIENT
  Age: 19 Year
  Sex: Male

DRUGS (7)
  1. VOVERAN OPHTHALMIC (NVO) [Suspect]
     Dosage: 0.1 %, 5 TIMES IN A DAY
  2. DEXAMETHASONE [Interacting]
  3. PROPARACAINE HCL [Interacting]
     Dosage: UNK
  4. OFLOXACIN [Interacting]
  5. RIBOFLAVIN TAB [Interacting]
  6. ANTIINFL. PREP., NON-STEROIDS FOR TOPICAL USE [Interacting]
  7. CARBOXYMETHYLCELLULOSE SODIUM [Interacting]
     Dosage: 4 TIMES A DAY IN BOTH EYES

REACTIONS (10)
  - BLINDNESS UNILATERAL [None]
  - CONJUNCTIVAL HYPERAEMIA [None]
  - CORNEAL OEDEMA [None]
  - CORNEAL PERFORATION [None]
  - CORNEAL THINNING [None]
  - DRUG INTERACTION [None]
  - EYE PAIN [None]
  - LACRIMATION INCREASED [None]
  - OCULAR HYPERAEMIA [None]
  - ULCERATIVE KERATITIS [None]
